FAERS Safety Report 9799986 (Version 2)
Quarter: 2015Q3

REPORT INFORMATION
  Report Type: Spontaneous
  Country: US (occurrence: US)
  Receive Date: 20140106
  Receipt Date: 20150806
  Transmission Date: 20151125
  Serious: No
  Sender: FDA-Public Use
  Company Number: US-GILEAD-2010-0030496

PATIENT
  Age: 74 Year
  Sex: Female
  Weight: 77.11 kg

DRUGS (10)
  1. LETAIRIS [Suspect]
     Active Substance: AMBRISENTAN
     Indication: PULMONARY ARTERIAL HYPERTENSION
     Route: 048
     Dates: start: 20071031
  2. FERROUS SULFATE [Concomitant]
     Active Substance: FERROUS SULFATE\FERROUS SULFATE, DRIED
  3. METOCLORPRMIDE [Concomitant]
  4. EFFEXOR [Concomitant]
     Active Substance: VENLAFAXINE HYDROCHLORIDE
  5. REVATIO [Concomitant]
     Active Substance: SILDENAFIL CITRATE
  6. CALCIUM [Concomitant]
     Active Substance: CALCIUM
  7. IMODIUM A-D [Concomitant]
     Active Substance: LOPERAMIDE HYDROCHLORIDE
  8. COUMADIN [Concomitant]
     Active Substance: WARFARIN SODIUM
  9. DIOVAN [Concomitant]
     Active Substance: VALSARTAN
  10. ALLEGRA-D [Concomitant]
     Active Substance: FEXOFENADINE\PSEUDOEPHEDRINE

REACTIONS (1)
  - Dyspnoea [Unknown]
